FAERS Safety Report 7371798-8 (Version None)
Quarter: 2011Q1

REPORT INFORMATION
  Report Type: 
  Country: None (occurrence: None)
  Receive Date: 20110324
  Receipt Date: 20110316
  Transmission Date: 20110831
  Serious: Yes (Hospitalization)
  Sender: FDA-Public Use
  Company Number: FR-ROCHE-765974

PATIENT
  Sex: Male
  Weight: 68 kg

DRUGS (26)
  1. DURAGESIC-100 [Concomitant]
     Dosage: 125UG/72HOURS
  2. ZOLPIDEM [Concomitant]
  3. LYRICA [Concomitant]
     Dosage: DOSE: 75X2
  4. BEVACIZUMAB [Suspect]
     Dosage: LAST DOSE PRIOR TO SAE: 22 FEB 2011
     Route: 042
  5. DURAGESIC-100 [Concomitant]
  6. XANAX [Concomitant]
     Dosage: AS REQUIRED
  7. EFFERALGAN [Concomitant]
  8. ACTISKENAN [Concomitant]
     Dosage: DOSE; 30X6
  9. NEXIUM [Concomitant]
  10. SOLUPRED [Concomitant]
  11. ALPRAZOLAM [Concomitant]
  12. TEMOZOLOMIDE [Suspect]
     Dosage: LAST DOSE PRIOR TO SAE: 07 MARCH 2011
     Route: 048
  13. DURAGESIC-100 [Concomitant]
  14. SOLUPRED [Concomitant]
  15. EDUCTYL [Concomitant]
  16. EFFEXOR [Concomitant]
  17. TEMOZOLOMIDE [Suspect]
     Route: 048
     Dates: start: 20101221, end: 20110104
  18. TEMOZOLOMIDE [Suspect]
     Route: 048
     Dates: end: 20110207
  19. PAROXETINE HCL [Concomitant]
  20. ZOPHREN [Concomitant]
     Dosage: AS REUIRED
  21. RIVOTRIL [Concomitant]
  22. ACTISKENAN [Concomitant]
     Dosage: AS NEEDED
  23. BEVACIZUMAB [Suspect]
     Dosage: LAST DOSE PRIOR TO SAE: 08 FEB 2011
     Route: 042
  24. PARACETAMOL [Concomitant]
  25. BEVACIZUMAB [Suspect]
     Dosage: LAST DOSE PRIOR TO SAE: 28 DECEMBER 2010
     Route: 042
     Dates: start: 20101228
  26. NEXIUM [Concomitant]

REACTIONS (2)
  - VOMITING [None]
  - GENERAL PHYSICAL HEALTH DETERIORATION [None]
